FAERS Safety Report 10655557 (Version 2)
Quarter: 2014Q4

REPORT INFORMATION
  Report Type: Spontaneous
  Country: US (occurrence: US)
  Receive Date: 20141216
  Receipt Date: 20141216
  Transmission Date: 20150529
  Serious: No
  Sender: FDA-Public Use
  Company Number: US-CELGENEUS-163-20785-14041755

PATIENT
  Sex: Female

DRUGS (2)
  1. THALOMID [Suspect]
     Active Substance: THALIDOMIDE
     Indication: PLASMA CELL MYELOMA
     Route: 048
     Dates: start: 201403, end: 2014
  2. THALOMID [Suspect]
     Active Substance: THALIDOMIDE
     Route: 048
     Dates: start: 201404, end: 2014

REACTIONS (5)
  - Somnolence [Unknown]
  - Neuropathy peripheral [Unknown]
  - Pruritus [Unknown]
  - Anxiety [Unknown]
  - Incoherent [Unknown]

NARRATIVE: CASE EVENT DATE: 2014
